FAERS Safety Report 9383611 (Version 1)
Quarter: 2013Q3

REPORT INFORMATION
  Report Type: Spontaneous
  Country: US (occurrence: US)
  Receive Date: 20130704
  Receipt Date: 20130704
  Transmission Date: 20140515
  Serious: No
  Sender: FDA-Public Use
  Company Number: US-PFIZER INC-2013197644

PATIENT
  Age: 72 Year
  Sex: Female
  Weight: 90.7 kg

DRUGS (5)
  1. CHANTIX [Suspect]
     Indication: SMOKING CESSATION THERAPY
     Dosage: 0.5 MG, 1X/DAY
     Dates: start: 20130621, end: 201306
  2. CHANTIX [Suspect]
     Dosage: 0.5 MG, 2X/DAY
     Dates: start: 201306
  3. AMOXICILLIN [Suspect]
     Indication: SINUSITIS
     Dosage: 875 MG, UNK
     Dates: start: 201306, end: 20130630
  4. CLARITIN [Suspect]
     Indication: HYPERSENSITIVITY
     Dosage: UNK
     Dates: start: 201306
  5. CLARITIN [Suspect]
     Indication: SINUSITIS

REACTIONS (1)
  - Nausea [Unknown]
